FAERS Safety Report 9365665 (Version 3)
Quarter: 2013Q3

REPORT INFORMATION
  Report Type: Spontaneous
  Country: AR (occurrence: AR)
  Receive Date: 20130625
  Receipt Date: 20130924
  Transmission Date: 20140515
  Serious: Yes (Other)
  Sender: FDA-Public Use
  Company Number: AR-AMGEN-ARGSP2013044234

PATIENT
  Age: 72 Year
  Sex: Female

DRUGS (4)
  1. ENBREL [Suspect]
     Indication: RHEUMATOID ARTHRITIS
     Dosage: 25 MG, 2X/WEEK
     Route: 065
     Dates: start: 20051030
  2. METHOTREXATE [Suspect]
     Indication: RHEUMATOID ARTHRITIS
     Dosage: UNK
     Route: 065
  3. DICLOFENAC [Concomitant]
     Dosage: UNK
  4. HUMIRA [Concomitant]
     Dosage: UNK

REACTIONS (12)
  - Abasia [Unknown]
  - Sciatic nerve injury [Not Recovered/Not Resolved]
  - Arthralgia [Not Recovered/Not Resolved]
  - Underweight [Not Recovered/Not Resolved]
  - Thyroid disorder [Recovered/Resolved]
  - Bone pain [Not Recovered/Not Resolved]
  - Drug ineffective [Not Recovered/Not Resolved]
  - Drug tolerance [Not Recovered/Not Resolved]
  - Hypersensitivity [Not Recovered/Not Resolved]
  - Urticaria [Recovered/Resolved]
  - Amnesia [Not Recovered/Not Resolved]
  - Anaemia [Not Recovered/Not Resolved]
